FAERS Safety Report 14299643 (Version 5)
Quarter: 2019Q4

REPORT INFORMATION
  Report Type: Report from Study
  Country: IT (occurrence: IT)
  Receive Date: 20171219
  Receipt Date: 20191003
  Transmission Date: 20200122
  Serious: Yes (Hospitalization, Other)
  Sender: FDA-Public Use
  Company Number: IT-ROCHE-2036963

PATIENT
  Age: 72 Year
  Sex: Female

DRUGS (8)
  1. REAPTAN [Concomitant]
     Active Substance: AMLODIPINE BESYLATE\PERINDOPRIL ARGININE
     Indication: HYPERTENSION
     Route: 048
     Dates: start: 201706
  2. ATORVASTATIN [Concomitant]
     Active Substance: ATORVASTATIN
     Indication: CARDIOVASCULAR EVENT PROPHYLAXIS
     Route: 048
     Dates: start: 201706
  3. CAPECITABINE. [Suspect]
     Active Substance: CAPECITABINE
     Indication: HER-2 POSITIVE GASTRIC CANCER
     Dosage: DATE OF MOST RECENT DOSE OF CAPECITABINE 3500 MG PRIOR TO SERIOUS ADVERSE EVENT (SAE): 07/SEP/2017.
     Route: 048
     Dates: start: 20170718, end: 20170908
  4. FERROGRAD [FERROUS SULFATE] [Concomitant]
     Active Substance: FERROUS SULFATE
     Route: 065
     Dates: start: 201706
  5. TRASTUZUMAB. [Suspect]
     Active Substance: TRASTUZUMAB
     Indication: HER-2 POSITIVE GASTRIC CANCER
     Dosage: DATE OF MOST RECENT DOSE OF  TRASTUZUMAB 396 MG PRIOR TO SERIOUS ADVERSE EVENT (SAE): 01/SEP/2017.
     Route: 042
     Dates: start: 20170718
  6. ESOMEPRAZOLE. [Concomitant]
     Active Substance: ESOMEPRAZOLE MAGNESIUM
     Indication: GASTROINTESTINAL DISORDER PROPHYLAXIS
     Route: 048
     Dates: start: 201706
  7. CISPLATIN. [Suspect]
     Active Substance: CISPLATIN
     Indication: HER-2 POSITIVE GASTRIC CANCER
     Dosage: DATE OF MOST RECENT DOSE OF CISPLATIN 71 MG PRIOR TO SERIOUS ADVERSE EVENT (SAE): 01/SEP/2017.
     Route: 042
     Dates: start: 20170718, end: 20170901
  8. HYDROCHLOROTHIAZIDE;NEBIVOLOL [Suspect]
     Active Substance: HYDROCHLOROTHIAZIDE\NEBIVOLOL HYDROCHLORIDE
     Indication: HYPERTENSION
     Dosage: 2.5/12.5 MG.
     Route: 048
     Dates: start: 20150615

REACTIONS (3)
  - Hyponatraemia [Recovered/Resolved]
  - Cystitis haemorrhagic [Recovered/Resolved]
  - Gastrointestinal stromal tumour [Recovered/Resolved]

NARRATIVE: CASE EVENT DATE: 20170908
